FAERS Safety Report 6297780-X (Version None)
Quarter: 2009Q3

REPORT INFORMATION
  Report Type: 
  Country: None (occurrence: None)
  Receive Date: 20090804
  Receipt Date: 20090804
  Transmission Date: 20100115
  Serious: Yes (Disabling)
  Sender: FDA-Public Use
  Company Number: None

PATIENT
  Age: 30 Year
  Sex: Male
  Weight: 60 kg

DRUGS (2)
  1. PROPECIA [Suspect]
     Indication: ALOPECIA
     Dosage: 1MG PER DAY, DAILY, BUCCAL
     Route: 002
     Dates: start: 20060101, end: 20080101
  2. SYMBICORT INHALER [Concomitant]

REACTIONS (1)
  - BLOOD IRON INCREASED [None]
